FAERS Safety Report 4850178-0 (Version None)
Quarter: 2005Q4

REPORT INFORMATION
  Report Type: 
  Country: None (occurrence: None)
  Receive Date: 20051123
  Receipt Date: 20050830
  Transmission Date: 20060501
  Serious: No
  Sender: FDA-Public Use
  Company Number: 217355

PATIENT
  Age: 61 Year
  Sex: Male

DRUGS (6)
  1. RAPTIVA [Suspect]
     Indication: PSORIASIS
     Dosage: 0.9 ML, 1/WEEK
     Dates: start: 20050501
  2. HCTZ (HYDROCHLOROTHIAZIDE) [Concomitant]
  3. ZOCOR [Concomitant]
  4. LOTREL (BENAZEPRIL HYDROCHLORIDE, AMLODIPINE BESYLATE) [Concomitant]
  5. AVANDAMET (METFORMIN, ROSIGLITAZONE MALEATE) [Concomitant]
  6. LIPITOR [Concomitant]

REACTIONS (5)
  - ALOPECIA [None]
  - ERYTHEMA [None]
  - PSORIASIS [None]
  - SKIN EXFOLIATION [None]
  - SKIN FISSURES [None]
